FAERS Safety Report 6818379-X (Version None)
Quarter: 2010Q3

REPORT INFORMATION
  Report Type: 
  Country: None (occurrence: None)
  Receive Date: 20100706
  Receipt Date: 20080115
  Transmission Date: 20110219
  Serious: No
  Sender: FDA-Public Use
  Company Number: US-PFIZER INC-2008004682

PATIENT
  Sex: Female

DRUGS (2)
  1. ZITHROMAX [Suspect]
  2. AZITHROMYCIN [Concomitant]

REACTIONS (3)
  - INCORRECT DOSE ADMINISTERED [None]
  - NO ADVERSE EVENT [None]
  - PRODUCT QUALITY ISSUE [None]
